FAERS Safety Report 6677742-0 (Version None)
Quarter: 2010Q2

REPORT INFORMATION
  Report Type: 
  Country: None (occurrence: None)
  Receive Date: 20100412
  Receipt Date: 20100217
  Transmission Date: 20101027
  Serious: No
  Sender: FDA-Public Use
  Company Number: US-ALEXION-A200901084

PATIENT
  Sex: Female

DRUGS (4)
  1. SOLIRIS [Suspect]
     Indication: PAROXYSMAL NOCTURNAL HAEMOGLOBINURIA
     Dosage: 600 MG, QW
     Route: 042
     Dates: start: 20091009, end: 20091030
  2. SOLIRIS [Suspect]
     Dosage: 900 MG, Q2W
     Route: 042
     Dates: start: 20091106
  3. IMITREX                            /01044801/ [Concomitant]
     Indication: MIGRAINE
     Dosage: UNK
     Route: 048
  4. MACROBID [Concomitant]
     Indication: URINARY TRACT INFECTION
     Dosage: UNK
     Route: 048

REACTIONS (5)
  - CHEST DISCOMFORT [None]
  - FLANK PAIN [None]
  - HEADACHE [None]
  - OESOPHAGEAL SPASM [None]
  - STRESS [None]
